FAERS Safety Report 10363312 (Version 3)
Quarter: 2016Q1

REPORT INFORMATION
  Report Type: Report from Study
  Country: JP (occurrence: JP)
  Receive Date: 20140805
  Receipt Date: 20160301
  Transmission Date: 20160525
  Serious: No
  Sender: FDA-Public Use
  Company Number: JP-BRISTOL-MYERS SQUIBB COMPANY-21254412

PATIENT
  Age: 64 Year
  Sex: Male
  Weight: 80 kg

DRUGS (12)
  1. ARTIST [Concomitant]
     Active Substance: CARVEDILOL
     Indication: LEFT VENTRICULAR DYSFUNCTION
     Dosage: 5 MG, QD
     Route: 048
     Dates: start: 20140315
  2. LANSOPRAZOLE. [Concomitant]
     Active Substance: LANSOPRAZOLE
     Indication: MYOCARDIAL ISCHAEMIA
     Dosage: 15 MG, QD
     Route: 048
     Dates: start: 20140411
  3. ETHYL ICOSAPENTATE [Concomitant]
     Active Substance: ICOSAPENT ETHYL
     Indication: MYOCARDIAL ISCHAEMIA
     Dosage: 1800 MG, QD
     Route: 048
     Dates: start: 20140411
  4. FUROSEMIDE. [Concomitant]
     Active Substance: FUROSEMIDE
     Indication: CARDIAC FAILURE
     Dosage: 20 MG, QD
     Route: 048
     Dates: start: 20140315
  5. PIMOBENDAN [Concomitant]
     Active Substance: PIMOBENDAN
     Indication: LEFT VENTRICULAR DYSFUNCTION
     Dosage: 6 MG, QD
     Route: 048
     Dates: start: 20140324
  6. ASPIRIN. [Concomitant]
     Active Substance: ASPIRIN
     Indication: MYOCARDIAL ISCHAEMIA
     Dosage: 100 MG, QD
     Route: 048
     Dates: start: 20140411
  7. APIXABAN [Suspect]
     Active Substance: APIXABAN
     Indication: CEREBROVASCULAR ACCIDENT PROPHYLAXIS
     Dosage: 5 MG, BID
     Route: 048
     Dates: start: 20140315, end: 20140612
  8. SPIRONOLACTONE. [Concomitant]
     Active Substance: SPIRONOLACTONE
     Indication: CARDIAC FAILURE
     Dosage: 12.5 MG, QD
     Route: 048
     Dates: start: 20140315
  9. IMIDAPRIL HCL [Concomitant]
     Active Substance: IMIDAPRIL HYDROCHLORIDE
     Indication: CARDIAC FAILURE
     Dosage: 2.5 MG, QD
     Route: 048
     Dates: start: 20140315
  10. HALFDIGOXIN [Concomitant]
     Active Substance: DIGOXIN
     Indication: PRODUCT USED FOR UNKNOWN INDICATION
     Dosage: HALFDIGOXIN-KY
     Route: 048
     Dates: start: 20140316
  11. SAMSCA [Concomitant]
     Active Substance: TOLVAPTAN
     Indication: CARDIAC FAILURE
     Dosage: 7.5 MG, QD
     Route: 048
     Dates: start: 20140319, end: 20140329
  12. CRESTOR [Concomitant]
     Active Substance: ROSUVASTATIN CALCIUM
     Indication: MYOCARDIAL ISCHAEMIA
     Dosage: 5 MG, QD
     Route: 048
     Dates: start: 20140411

REACTIONS (4)
  - Hepatic function abnormal [Recovered/Resolved]
  - Prothrombin time prolonged [Recovered/Resolved]
  - Renal impairment [Recovered/Resolved]
  - Cardiac failure [Recovered/Resolved]

NARRATIVE: CASE EVENT DATE: 20140612
